FAERS Safety Report 11549742 (Version 1)
Quarter: 2015Q3

REPORT INFORMATION
  Report Type: Spontaneous
  Country: US (occurrence: US)
  Receive Date: 20150903
  Receipt Date: 20150903
  Transmission Date: 20151125
  Serious: No
  Sender: FDA-Public Use
  Company Number: US-ELI_LILLY_AND_COMPANY-US201302004222

PATIENT
  Sex: Female

DRUGS (1)
  1. HUMALOG [Suspect]
     Active Substance: INSULIN LISPRO
     Dosage: UNK UNK, SIX TIMES A DAY
     Dates: start: 2010

REACTIONS (6)
  - Injection site injury [Unknown]
  - Blood glucose increased [Unknown]
  - Skin injury [Unknown]
  - Laceration [Unknown]
  - Needle track marks [Unknown]
  - Underdose [Unknown]
